FAERS Safety Report 12599858 (Version 2)
Quarter: 2016Q3

REPORT INFORMATION
  Report Type: Spontaneous
  Country: FR (occurrence: FR)
  Receive Date: 20160727
  Receipt Date: 20160913
  Transmission Date: 20161109
  Serious: Yes (Hospitalization)
  Sender: FDA-Public Use
  Company Number: FR-PFIZER INC-2016355739

PATIENT
  Age: 88 Year
  Sex: Female
  Weight: 53 kg

DRUGS (11)
  1. LYRICA [Concomitant]
     Active Substance: PREGABALIN
     Indication: AMPUTATION STUMP PAIN
     Dosage: 50 MG, 1X/DAY
     Route: 048
     Dates: end: 20160610
  2. LASILIX [Concomitant]
     Active Substance: FUROSEMIDE
     Dosage: 40 MG, 1X/DAY
     Route: 048
  3. INEXIUM [Concomitant]
     Active Substance: ESOMEPRAZOLE
     Indication: PROPHYLAXIS
     Dosage: 20 MG, 1X/DAY
     Route: 048
  4. KARDEGIC [Concomitant]
     Active Substance: ASPIRIN LYSINE
     Indication: ARTERIAL DISORDER
     Dosage: 75 MG, 1X/DAY
     Route: 048
  5. LANTUS [Concomitant]
     Active Substance: INSULIN GLARGINE
     Indication: DIABETES MELLITUS
     Dosage: 34 IU, 1X/DAY
     Route: 058
  6. LYRICA [Suspect]
     Active Substance: PREGABALIN
     Indication: AMPUTATION STUMP PAIN
     Dosage: 300 MG, 1X/DAY
     Route: 048
     Dates: start: 20160610, end: 20160613
  7. LEVOTHYROX [Concomitant]
     Active Substance: LEVOTHYROXINE
     Indication: THYROIDECTOMY
     Dosage: 100 UG, 1X/DAY
     Route: 048
  8. FLIXOTIDE [Concomitant]
     Active Substance: FLUTICASONE PROPIONATE
     Indication: DYSPNOEA
     Dosage: 25 UG, 2X/DAY
     Route: 055
  9. CIFLOX [Suspect]
     Active Substance: CIPROFLOXACIN
     Indication: OSTEOMYELITIS
     Dosage: 500 MG, 1X/DAY
     Route: 048
     Dates: start: 20160503, end: 20160613
  10. NOVORAPID [Concomitant]
     Active Substance: INSULIN ASPART
     Indication: DIABETES MELLITUS
     Dosage: 6 IU, 3X/DAY
     Route: 058
  11. CORDARONE [Concomitant]
     Active Substance: AMIODARONE HYDROCHLORIDE
     Indication: CARDIOMYOPATHY
     Dosage: 200 MG, 1X/DAY
     Route: 048

REACTIONS (5)
  - Confusional state [Recovered/Resolved]
  - Dysarthria [Unknown]
  - Accidental overdose [Recovered/Resolved]
  - Toxic encephalopathy [Recovered/Resolved]
  - Myoclonus [Recovered/Resolved]

NARRATIVE: CASE EVENT DATE: 20160610
